FAERS Safety Report 21735375 (Version 1)
Quarter: 2022Q4

REPORT INFORMATION
  Report Type: Spontaneous
  Country: US (occurrence: US)
  Receive Date: 20221215
  Receipt Date: 20221215
  Transmission Date: 20230113
  Serious: Yes (Hospitalization)
  Sender: FDA-Public Use
  Company Number: US-Taiho Oncology Inc-EU-2019-02753

PATIENT
  Age: 47 Year
  Sex: Male
  Weight: 57.8 kg

DRUGS (1)
  1. LONSURF [Suspect]
     Active Substance: TIPIRACIL HYDROCHLORIDE\TRIFLURIDINE
     Indication: Oesophageal cancer metastatic
     Dosage: CURRENT CYCLE 3 STARTED IN JULY 2019
     Route: 048
     Dates: end: 20190729

REACTIONS (3)
  - Oesophageal stenosis [Unknown]
  - Dysphagia [Unknown]
  - Intentional product use issue [Unknown]

NARRATIVE: CASE EVENT DATE: 20190801
